FAERS Safety Report 6032267-0 (Version None)
Quarter: 2008Q4

REPORT INFORMATION
  Report Type: 
  Country: None (occurrence: None)
  Receive Date: 20081223
  Receipt Date: 20081210
  Transmission Date: 20090506
  Serious: Yes (Other)
  Sender: FDA-Public Use
  Company Number: AEUSA200800286

PATIENT
  Age: 51 Year
  Sex: Male

DRUGS (4)
  1. GAMUNEX [Suspect]
     Indication: CHRONIC INFLAMMATORY DEMYELINATING POLYRADICULONEUROPATHY
     Dosage: 30 GM;QOW;IV
     Route: 042
     Dates: start: 20080401, end: 20081201
  2. TOPROL-XL [Concomitant]
  3. LASIX [Concomitant]
  4. DIAZEPAM [Concomitant]

REACTIONS (7)
  - ARTHRALGIA [None]
  - CONDITION AGGRAVATED [None]
  - DYSPNOEA [None]
  - OEDEMA PERIPHERAL [None]
  - RASH [None]
  - RASH PRURITIC [None]
  - VIRAL INFECTION [None]
